FAERS Safety Report 9062329 (Version 2)
Quarter: 2013Q4

REPORT INFORMATION
  Report Type: Report from Study
  Country: US (occurrence: US)
  Receive Date: 20130213
  Receipt Date: 20131028
  Transmission Date: 20140711
  Serious: Yes (Other)
  Sender: FDA-Public Use
  Company Number: US-GLAXOSMITHKLINE-A0965921B

PATIENT
  Age: 54 Year
  Sex: Male

DRUGS (7)
  1. INFLUENZA VACCINE UNSPECIFIED 2012-13 SEASON [Suspect]
     Indication: PROPHYLAXIS
     Route: 065
     Dates: start: 201211, end: 201211
  2. INFLUENZA VACCINE UNSPECIFIED 2013-2014 SEASON [Suspect]
     Indication: PROPHYLAXIS
     Route: 065
     Dates: start: 2013, end: 2013
  3. ADVAIR [Suspect]
     Indication: CHRONIC OBSTRUCTIVE PULMONARY DISEASE
     Route: 065
  4. ALBUTEROL [Suspect]
     Indication: CHRONIC OBSTRUCTIVE PULMONARY DISEASE
     Route: 065
  5. PNEUMONIA VACCINE (NON-GSK) [Suspect]
     Indication: PROPHYLAXIS
     Route: 065
     Dates: start: 2013, end: 2013
  6. ANTIBIOTIC [Concomitant]
  7. OXYGEN [Concomitant]
     Route: 055

REACTIONS (11)
  - Influenza [Not Recovered/Not Resolved]
  - Asthenia [Not Recovered/Not Resolved]
  - Dyspnoea [Not Recovered/Not Resolved]
  - Cough [Not Recovered/Not Resolved]
  - Oxygen saturation decreased [Not Recovered/Not Resolved]
  - Vaccination failure [Unknown]
  - Ill-defined disorder [Unknown]
  - Abdominal distension [Unknown]
  - Malaise [Unknown]
  - Hypersomnia [Unknown]
  - Chronic obstructive pulmonary disease [Unknown]
